FAERS Safety Report 14060852 (Version 2)
Quarter: 2017Q4

REPORT INFORMATION
  Report Type: Report from Study
  Country: ZA (occurrence: ZA)
  Receive Date: 20171009
  Receipt Date: 20171019
  Transmission Date: 20180321
  Serious: Yes (Other)
  Sender: FDA-Public Use
  Company Number: PHHY2017ZA146789

PATIENT
  Sex: Male

DRUGS (1)
  1. EXFORGE [Suspect]
     Active Substance: AMLODIPINE BESYLATE\VALSARTAN
     Indication: HYPERTENSION
     Dosage: (AMLODPINE 5 MG/VALSARTAN 160 MG/HYDROCHLOROTHIAZIDE UNK)
     Route: 048

REACTIONS (2)
  - Cellulitis [Unknown]
  - Malaise [Unknown]
